FAERS Safety Report 10226082 (Version 2)
Quarter: 2014Q2

REPORT INFORMATION
  Report Type: Spontaneous
  Country: US (occurrence: US)
  Receive Date: 20140609
  Receipt Date: 20140609
  Transmission Date: 20141212
  Serious: No
  Sender: FDA-Public Use
  Company Number: US-ASTELLAS-2014US003477

PATIENT
  Sex: Male

DRUGS (7)
  1. XTANDI [Suspect]
     Indication: PROSTATE CANCER
     Route: 048
     Dates: start: 20140114, end: 20140313
  2. FENTANYL [Concomitant]
     Indication: PAIN
     Route: 061
     Dates: start: 20140228
  3. OXYCODONE [Concomitant]
     Indication: PAIN
     Dosage: 5 MG, 4-6 QHS
     Route: 048
     Dates: start: 20131125
  4. TRAZODONE [Concomitant]
     Indication: DEPRESSION
     Route: 048
     Dates: start: 20120925
  5. LOPRESSOR [Concomitant]
     Indication: BLOOD PRESSURE
     Route: 048
     Dates: start: 200901
  6. MAXZIDE [Concomitant]
     Indication: FLUID RETENTION
     Route: 065
     Dates: start: 200901
  7. TRAVATAN [Concomitant]
     Indication: GLAUCOMA
     Route: 047
     Dates: start: 200901

REACTIONS (1)
  - Pain [Unknown]
